FAERS Safety Report 9429271 (Version 1)
Quarter: 2013Q3

REPORT INFORMATION
  Report Type: Spontaneous
  Country: US (occurrence: US)
  Receive Date: 20130730
  Receipt Date: 20130730
  Transmission Date: 20140515
  Serious: Yes (Other)
  Sender: FDA-Public Use
  Company Number: US-UCBSA-092719

PATIENT
  Sex: Female

DRUGS (1)
  1. CIMZIA [Suspect]

REACTIONS (3)
  - Hypersensitivity [Unknown]
  - Abnormal sensation in eye [Unknown]
  - Head discomfort [Unknown]
